FAERS Safety Report 17632492 (Version 1)
Quarter: 2020Q2

REPORT INFORMATION
  Report Type: Spontaneous
  Country: DE (occurrence: DE)
  Receive Date: 20200406
  Receipt Date: 20200406
  Transmission Date: 20200713
  Serious: Yes (Hospitalization)
  Sender: FDA-Public Use
  Company Number: DE-ALLERGAN-2014339US

PATIENT
  Sex: Male

DRUGS (6)
  1. PREDNISOLONE. [Suspect]
     Active Substance: PREDNISOLONE
     Dosage: 60 MG, QD
     Route: 065
     Dates: start: 201705
  2. PREDNISOLONE. [Suspect]
     Active Substance: PREDNISOLONE
     Indication: COLITIS ULCERATIVE
     Dosage: 10 MG
     Dates: start: 201706
  3. REMICADE [Suspect]
     Active Substance: INFLIXIMAB
     Indication: COLITIS ULCERATIVE
     Route: 042
     Dates: start: 201705
  4. MESALAZINE UNK [Suspect]
     Active Substance: MESALAMINE
     Indication: COLITIS ULCERATIVE
     Route: 065
     Dates: start: 201705
  5. VALGANCICLOVIR. [Suspect]
     Active Substance: VALGANCICLOVIR
     Indication: CYTOMEGALOVIRUS TEST POSITIVE
     Dosage: 1-0-1 RECOMMENDED FOR 3 WEEKS
     Route: 048
     Dates: start: 201705
  6. COTRIM FORTE [Suspect]
     Active Substance: SULFAMETHOXAZOLE\TRIMETHOPRIM
     Indication: ANTIFUNGAL PROPHYLAXIS
     Dosage: 3 X WEEKLY
     Route: 065
     Dates: start: 201705

REACTIONS (4)
  - Pancreatitis [Unknown]
  - Colitis ulcerative [Unknown]
  - Campylobacter infection [Unknown]
  - Cytomegalovirus enteritis [Unknown]

NARRATIVE: CASE EVENT DATE: 201706
